FAERS Safety Report 9243043 (Version 1)
Quarter: 2013Q2

REPORT INFORMATION
  Report Type: Spontaneous
  Country: GR (occurrence: GR)
  Receive Date: 20130420
  Receipt Date: 20130420
  Transmission Date: 20140414
  Serious: Yes (Death, Life-Threatening)
  Sender: FDA-Public Use
  Company Number: GR-ACCORD-017265

PATIENT
  Age: 60 Year
  Sex: Male

DRUGS (3)
  1. QUETIAPINE FUMARATE [Suspect]
     Indication: SCHIZOPHRENIA
     Dosage: PATIENT WAS ON DAILY TREATMENT OF 600MG QUETIAPINE FUMARATE IMMEDIATE RELEASE PREPARATION
  2. LORAZEPAM [Concomitant]
  3. AMISULPRIDE [Concomitant]

REACTIONS (2)
  - Sudden cardiac death [Fatal]
  - Overdose [Unknown]
